FAERS Safety Report 9073450 (Version 1)
Quarter: 2013Q1

REPORT INFORMATION
  Report Type: Report from Study
  Country: US (occurrence: US)
  Receive Date: 20130129
  Receipt Date: 20130129
  Transmission Date: 20140127
  Serious: No
  Sender: FDA-Public Use
  Company Number: US-ABBOTT-12P-163-0918498-00

PATIENT
  Age: 63 Year
  Sex: Female

DRUGS (14)
  1. HUMIRA 40 MG/0.8 ML PEN [Suspect]
     Indication: ANKYLOSING SPONDYLITIS
     Dates: start: 20111215
  2. PRILOSEC [Concomitant]
     Indication: GASTROOESOPHAGEAL REFLUX DISEASE
     Dosage: 2 TABS TWICE DAILY
  3. RECLAST INFUSION [Concomitant]
     Indication: OSTEOPENIA
     Dosage: ANNUALLY
  4. ATENOLOL [Concomitant]
     Indication: HYPERTENSION
     Dosage: 50 MG DAILY
  5. PREDNISONE [Concomitant]
     Indication: PRODUCT USED FOR UNKNOWN INDICATION
     Dosage: 4 MG DAILY
  6. HYDROCHLOROTHIAZIDE [Concomitant]
     Indication: HYPERTENSION
     Dosage: 25 MG DAILY
  7. SIMVASTATIN [Concomitant]
     Indication: BLOOD CHOLESTEROL INCREASED
     Dosage: 10 MG DAILY
  8. HYDROMORPHONE [Concomitant]
     Indication: PAIN
  9. DIAZEPAM [Concomitant]
     Indication: MUSCLE SPASMS
  10. PHENERGAN [Concomitant]
     Indication: NAUSEA
  11. BENTYL [Concomitant]
     Indication: PAIN
  12. BENTYL [Concomitant]
     Indication: CROHN^S DISEASE
  13. BENTYL [Concomitant]
     Indication: ABDOMINAL PAIN
  14. IMITREX [Concomitant]
     Indication: MIGRAINE
     Dosage: PILLS, AS REQUIRED

REACTIONS (3)
  - Contusion [Recovering/Resolving]
  - Pain [Recovering/Resolving]
  - Pain [Not Recovered/Not Resolved]
